FAERS Safety Report 23291474 (Version 1)
Quarter: 2023Q4

REPORT INFORMATION
  Report Type: Spontaneous
  Country: FR (occurrence: FR)
  Receive Date: 20231213
  Receipt Date: 20231213
  Transmission Date: 20240109
  Serious: Yes (Other)
  Sender: FDA-Public Use
  Company Number: FR-HACPHARMA-202300160

PATIENT
  Age: 45 Year
  Sex: Male

DRUGS (5)
  1. BUSULFAN [Suspect]
     Active Substance: BUSULFAN
     Indication: Stem cell transplant
     Dosage: 6.4 MG/KG FROM DAY -6 TO DAY -2
     Route: 065
  2. THIOTEPA [Suspect]
     Active Substance: THIOTEPA
     Indication: Stem cell transplant
     Dosage: 10 MG/KG
     Route: 065
  3. FLUDARABINE [Suspect]
     Active Substance: FLUDARABINE PHOSPHATE
     Indication: Stem cell transplant
     Dosage: 150 MG/M?
     Route: 065
  4. CYCLOPHOSPHAMIDE [Suspect]
     Active Substance: CYCLOPHOSPHAMIDE
     Indication: Stem cell transplant
     Dosage: 1600 MG/M? FROM DAY -15 TO DAY -10,
     Route: 065
  5. ETOPOSIDE [Suspect]
     Active Substance: ETOPOSIDE
     Indication: Stem cell transplant
     Dosage: 400 MG/M?
     Route: 065

REACTIONS (4)
  - Mycoplasma infection [Unknown]
  - Cytomegalovirus infection reactivation [Recovered/Resolved]
  - Paronychia [Unknown]
  - Influenza [Unknown]

NARRATIVE: CASE EVENT DATE: 20160101
